FAERS Safety Report 9363726 (Version 3)
Quarter: 2013Q3

REPORT INFORMATION
  Report Type: Spontaneous
  Country: US (occurrence: US)
  Receive Date: 20130624
  Receipt Date: 20130724
  Transmission Date: 20140515
  Serious: No
  Sender: FDA-Public Use
  Company Number: US-009507513-1306USA007804

PATIENT
  Sex: Male
  Weight: 135.6 kg

DRUGS (1)
  1. SAPHRIS [Suspect]
     Indication: DEPRESSION
     Dosage: 10 MG/ ONCE DAILY AT BEDTIME
     Route: 060
     Dates: start: 20130311, end: 20130513

REACTIONS (1)
  - Weight increased [Not Recovered/Not Resolved]
